FAERS Safety Report 9901022 (Version 1)
Quarter: 2014Q1

REPORT INFORMATION
  Report Type: Spontaneous
  Country: US (occurrence: US)
  Receive Date: 20140217
  Receipt Date: 20140217
  Transmission Date: 20141002
  Serious: No
  Sender: FDA-Public Use
  Company Number: US-ABBVIE-13P-163-1053273-00

PATIENT
  Sex: Female
  Weight: 104.42 kg

DRUGS (4)
  1. SIMCOR 500/20 [Suspect]
     Indication: BLOOD CHOLESTEROL INCREASED
     Dosage: 500/20
  2. TWO BLOOD PRESSURE MEDICATIONS (NON-ABBOTT) [Concomitant]
     Indication: PRODUCT USED FOR UNKNOWN INDICATION
  3. DIABETES MEDICATION [Concomitant]
     Indication: PRODUCT USED FOR UNKNOWN INDICATION
  4. ASA [Concomitant]
     Indication: PRODUCT USED FOR UNKNOWN INDICATION

REACTIONS (2)
  - Diarrhoea [Unknown]
  - Vomiting [Unknown]
